FAERS Safety Report 7293220-2 (Version None)
Quarter: 2011Q1

REPORT INFORMATION
  Report Type: 
  Country: None (occurrence: None)
  Receive Date: 20110203
  Receipt Date: 20110118
  Transmission Date: 20110831
  Serious: Yes (Death, Hospitalization)
  Sender: FDA-Public Use
  Company Number: B0694603A

PATIENT
  Age: 17 Year
  Sex: Male

DRUGS (6)
  1. VENLAFAXINE HCL [Suspect]
  2. INNOPRAN XL (FORMULATION UNKNOWN) (PROPRANOLOL HYDROCHLORIDE) [Suspect]
     Dosage: ORAL
     Route: 048
  3. GABAPENTIN [Suspect]
  4. LOVASTATIN (FORMULATION UNKNOWN) (LOVASTATIN) [Suspect]
  5. FEXOFENADINE HYDROCHLORID (FORMULATION UNKNOWN) (FEXOFENADINE HYDROCHL [Suspect]
  6. METHADONE HCL [Suspect]
     Dosage: ORAL
     Route: 048

REACTIONS (5)
  - CARDIAC ARREST [None]
  - COMPLETED SUICIDE [None]
  - TOXICITY TO VARIOUS AGENTS [None]
  - UNRESPONSIVE TO STIMULI [None]
  - APNOEA [None]
